FAERS Safety Report 11003459 (Version 1)
Quarter: 2015Q2

REPORT INFORMATION
  Report Type: Spontaneous
  Country: US (occurrence: None)
  Receive Date: 20150408
  Receipt Date: 20150408
  Transmission Date: 20150821
  Serious: Yes (Disabling)
  Sender: FDA-Public Use
  Company Number: None

PATIENT
  Age: 82 Year
  Sex: Female
  Weight: 71.22 kg

DRUGS (7)
  1. LEVOFLOXACIN 750 MG [Suspect]
     Active Substance: LEVOFLOXACIN
     Indication: PANNICULITIS
     Dosage: ONE PILL, ONCE DAILY, TAKEN BY MOUTH
     Route: 048
     Dates: start: 20150311, end: 20150316
  2. EFFEXOR [Concomitant]
     Active Substance: VENLAFAXINE HYDROCHLORIDE
  3. VITAMIN E [Concomitant]
     Active Substance: .ALPHA.-TOCOPHEROL
  4. LEVOFLOXACIN 750 MG [Suspect]
     Active Substance: LEVOFLOXACIN
     Indication: INFECTION
     Dosage: ONE PILL, ONCE DAILY, TAKEN BY MOUTH
     Route: 048
     Dates: start: 20150311, end: 20150316
  5. VITMAIN C 500 [Concomitant]
  6. TRAZODONE [Concomitant]
     Active Substance: TRAZODONE HYDROCHLORIDE
  7. NASACOURT [Concomitant]

REACTIONS (3)
  - Joint stiffness [None]
  - Movement disorder [None]
  - Musculoskeletal pain [None]

NARRATIVE: CASE EVENT DATE: 20150311
